FAERS Safety Report 23805880 (Version 1)
Quarter: 2024Q2

REPORT INFORMATION
  Report Type: Spontaneous
  Country: FR (occurrence: FR)
  Receive Date: 20240502
  Receipt Date: 20240502
  Transmission Date: 20240716
  Serious: Yes (Other)
  Sender: FDA-Public Use
  Company Number: FR-CHEPLA-2024005385

PATIENT
  Age: 47 Year
  Sex: Female

DRUGS (11)
  1. OLANZAPINE [Suspect]
     Active Substance: OLANZAPINE
     Indication: Bipolar disorder
     Dosage: FREQUENCY: 1/.1?DAILY DOSE: 30 MILLIGRAM
     Route: 048
     Dates: start: 2016, end: 2017
  2. OLANZAPINE [Suspect]
     Active Substance: OLANZAPINE
     Indication: Bipolar disorder
     Dosage: FREQUENCY: 1/1
     Route: 048
     Dates: start: 2017, end: 2017
  3. OLANZAPINE [Suspect]
     Active Substance: OLANZAPINE
     Indication: Bipolar disorder
     Dosage: FREQUENCY: 1/D?DAILY DOSE: 20 MILLIGRAM
     Route: 048
     Dates: start: 2017, end: 2018
  4. OLANZAPINE [Suspect]
     Active Substance: OLANZAPINE
     Indication: Bipolar disorder
     Dosage: FREQUENCY: 1/D?DAILY DOSE: 15 MILLIGRAM
     Route: 048
     Dates: start: 2018, end: 2018
  5. OLANZAPINE [Suspect]
     Active Substance: OLANZAPINE
     Indication: Bipolar disorder
     Dosage: FREQUENCY: 1/.1
     Route: 048
     Dates: start: 2019, end: 2019
  6. OLANZAPINE [Suspect]
     Active Substance: OLANZAPINE
     Indication: Bipolar disorder
     Dosage: FREQUENCY: 1/D?DAILY DOSE: 5 MILLIGRAM
     Route: 048
     Dates: start: 2019, end: 2019
  7. TRAMADOL [Suspect]
     Active Substance: TRAMADOL\TRAMADOL HYDROCHLORIDE
     Indication: Pain
     Dosage: FREQUENCT NC
     Route: 048
     Dates: start: 2016, end: 2017
  8. LOXAPINE [Suspect]
     Active Substance: LOXAPINE
     Indication: Psychotic disorder
     Dosage: FREQUENY: 1/D?DAILY DOSE: 25 MILLIGRAM
     Route: 048
     Dates: start: 2016, end: 2016
  9. ABILIFY [Suspect]
     Active Substance: ARIPIPRAZOLE
     Indication: Bipolar disorder
     Dosage: FREQUENCY: 1/D?DAILY DOSE: 15 MILLIGRAM
     Route: 048
     Dates: start: 2017, end: 2017
  10. ESCITALOPRAM OXALATE [Suspect]
     Active Substance: ESCITALOPRAM OXALATE
     Indication: Depression
     Dosage: FREQUENCY: 3/D?DAILY DOSE: 30 MILLIGRAM
     Route: 048
     Dates: start: 2019, end: 2019
  11. ESCITALOPRAM OXALATE [Suspect]
     Active Substance: ESCITALOPRAM OXALATE
     Indication: Depression
     Dosage: FREQUENCY: 1/D/ ONGOING?DAILY DOSE: 10 MILLIGRAM
     Route: 048
     Dates: start: 2019

REACTIONS (27)
  - Delirium [Unknown]
  - Major depression [Not Recovered/Not Resolved]
  - Hypersensitivity [Unknown]
  - Sleep disorder [Unknown]
  - Swelling [Unknown]
  - Weight increased [Unknown]
  - Disturbance in attention [Unknown]
  - Decreased appetite [Unknown]
  - Somnolence [Unknown]
  - Anosmia [Unknown]
  - Ageusia [Unknown]
  - Overdose [Unknown]
  - Emotional poverty [Unknown]
  - Vision blurred [Unknown]
  - Anxiety [Unknown]
  - Blepharospasm [Unknown]
  - Amnesia [Unknown]
  - Tremor [Unknown]
  - Confusional state [Unknown]
  - Time perception altered [Unknown]
  - Speech disorder [Unknown]
  - Apathy [Unknown]
  - Mutism [Unknown]
  - Dry skin [Unknown]
  - Salivary hypersecretion [Unknown]
  - Job dissatisfaction [Unknown]
  - Panic attack [Unknown]

NARRATIVE: CASE EVENT DATE: 20160101
